FAERS Safety Report 10681452 (Version 1)
Quarter: 2014Q4

REPORT INFORMATION
  Report Type: Spontaneous
  Country: GB (occurrence: GB)
  Receive Date: 20141230
  Receipt Date: 20141230
  Transmission Date: 20150529
  Serious: Yes (Other)
  Sender: FDA-Public Use
  Company Number: GB-ACCORD-027618

PATIENT
  Age: 69 Year
  Sex: Female
  Weight: 69 kg

DRUGS (13)
  1. SENNA [Concomitant]
     Active Substance: SENNA LEAF\SENNOSIDES\SENNOSIDES A AND B
     Dates: start: 20140922, end: 20141114
  2. RAMIPRIL. [Suspect]
     Active Substance: RAMIPRIL
     Indication: PRODUCT USED FOR UNKNOWN INDICATION
     Route: 048
     Dates: start: 20140922
  3. ANASTROZOLE. [Concomitant]
     Active Substance: ANASTROZOLE
     Dates: start: 20140801, end: 20141117
  4. ACETYLSALICYLIC ACID [Concomitant]
     Active Substance: ASPIRIN
     Dates: start: 20140801, end: 20141117
  5. DIPYRIDAMOLE. [Concomitant]
     Active Substance: DIPYRIDAMOLE
     Dates: start: 20140801, end: 20141121
  6. OMEPRAZOLE. [Concomitant]
     Active Substance: OMEPRAZOLE
     Dates: start: 20140801, end: 20141117
  7. AMLODIPINE [Concomitant]
     Active Substance: AMLODIPINE BESYLATE
     Dates: start: 20140801, end: 20141117
  8. LACTULOSE. [Concomitant]
     Active Substance: LACTULOSE
     Dates: start: 20141013, end: 20141029
  9. IBUPROFEN. [Concomitant]
     Active Substance: IBUPROFEN
     Dates: start: 20140922, end: 20141128
  10. BENDROFLUMETHIAZIDE [Concomitant]
     Active Substance: BENDROFLUMETHIAZIDE
     Dates: start: 20140801, end: 20141117
  11. BISOPROLOL [Concomitant]
     Active Substance: BISOPROLOL
     Dates: start: 20141114
  12. ADCAL [Concomitant]
     Dates: start: 20140801, end: 20141117
  13. GLYCEROL [Concomitant]
     Active Substance: GLYCERIN
     Dates: start: 20141027, end: 20141108

REACTIONS (1)
  - Alopecia [Recovered/Resolved]

NARRATIVE: CASE EVENT DATE: 20141203
